FAERS Safety Report 7757308-1 (Version None)
Quarter: 2011Q3

REPORT INFORMATION
  Report Type: 
  Country: None (occurrence: None)
  Receive Date: 20110916
  Receipt Date: 20110906
  Transmission Date: 20111222
  Serious: Yes (Hospitalization, Other)
  Sender: FDA-Public Use
  Company Number: US-BAYER-201031220NA

PATIENT
  Age: 48 Year
  Sex: Female
  Weight: 76.644 kg

DRUGS (8)
  1. ACIPHEX [Concomitant]
     Dosage: 20 MG, QD
     Route: 048
  2. FERROUS SULFATE TAB [Concomitant]
     Dosage: 325 MG, BID
     Route: 048
  3. THYROID TAB [Concomitant]
     Indication: THYROID DISORDER
     Dosage: UNK UNK, QD
     Route: 048
     Dates: start: 20010101, end: 20090101
  4. YASMIN [Suspect]
     Indication: MENSTRUATION IRREGULAR
     Dosage: UNK
     Dates: start: 20060701, end: 20060801
  5. MAGNESIUM [Concomitant]
     Dosage: UNK UNK, QD
     Route: 048
  6. AMBIEN CR [Concomitant]
     Dosage: 6.25 MG, UNK
     Route: 048
  7. WARFARIN SODIUM [Concomitant]
  8. AMBIEN [Concomitant]
     Dosage: 10 MG, UNK
     Route: 048

REACTIONS (2)
  - PULMONARY EMBOLISM [None]
  - DEEP VEIN THROMBOSIS [None]
